FAERS Safety Report 16034081 (Version 1)
Quarter: 2019Q1

REPORT INFORMATION
  Report Type: Spontaneous
  Country: US (occurrence: US)
  Receive Date: 20190305
  Receipt Date: 20190305
  Transmission Date: 20190418
  Serious: No
  Sender: FDA-Public Use
  Company Number: US-IMPAX LABORATORIES, LLC-2018-IPXL-02725

PATIENT
  Age: 79 Year
  Sex: Female
  Weight: 51 kg

DRUGS (21)
  1. POLYETHYLENE GLYCOL [Concomitant]
     Active Substance: POLYETHYLENE GLYCOLS
     Indication: GASTROINTESTINAL DISORDER
     Dosage: 17 G, ONCE A DAY
     Route: 048
  2. CALMOSEPTINE [Concomitant]
     Active Substance: MENTHOL\ZINC OXIDE
     Indication: SKIN DISORDER
     Dosage: UNK, ONCE A DAY
     Route: 061
     Dates: start: 201808
  3. RYTARY [Suspect]
     Active Substance: CARBIDOPA\LEVODOPA
     Dosage: 23.75/95 MG, THREE CAPSULES, EVERY SIX HOURS
     Route: 048
     Dates: start: 20180726, end: 20180731
  4. RYTARY [Suspect]
     Active Substance: CARBIDOPA\LEVODOPA
     Dosage: 23.75/95 MG, FOUR CAPSULES, EVERY SIX HOURS
     Route: 048
     Dates: start: 20180801, end: 20180813
  5. RYTARY [Suspect]
     Active Substance: CARBIDOPA\LEVODOPA
     Dosage: 23.75/95 MG, TWO CAPSULES, EVERY 6HR
     Route: 048
     Dates: start: 20180814, end: 20180816
  6. BUSPIRONE [Concomitant]
     Active Substance: BUSPIRONE HYDROCHLORIDE
     Indication: ANXIETY
     Dosage: 15 MG, TWO TIMES A DAY
     Route: 048
     Dates: start: 2016
  7. CEVIMELINE. [Concomitant]
     Active Substance: CEVIMELINE
     Indication: SALIVARY HYPERSECRETION
     Dosage: 30 MG,  THREE TIMES A DAY
     Route: 048
     Dates: start: 2016
  8. DONEPEZIL. [Concomitant]
     Active Substance: DONEPEZIL
     Indication: MEMORY IMPAIRMENT
     Dosage: 10 MG, ONCE DAILY
     Route: 048
     Dates: start: 201601
  9. RESTASIS [Concomitant]
     Active Substance: CYCLOSPORINE
     Indication: DRY EYE
     Dosage: UNK, 1 GTT, BID
     Route: 048
     Dates: start: 2014
  10. ST. JOSEPH ASPIRIN [Concomitant]
     Indication: THROMBOSIS PROPHYLAXIS
     Dosage: 81, ONCE A DAY
     Route: 048
     Dates: start: 2013
  11. VESICARE [Concomitant]
     Active Substance: SOLIFENACIN SUCCINATE
     Indication: URINARY INCONTINENCE
     Dosage: 5 MG, ONCE A DAY
     Route: 048
     Dates: start: 201806
  12. VITAMIN D3 [Concomitant]
     Active Substance: CHOLECALCIFEROL
     Indication: VITAMIN SUPPLEMENTATION
     Dosage: 1000 IU, ONCE A DAY
     Route: 048
     Dates: start: 2016
  13. THERATEARS [Concomitant]
     Active Substance: CARBOXYMETHYLCELLULOSE SODIUM
     Indication: DRY EYE
     Dosage: 1 GTT, AS NEEDED
     Route: 047
     Dates: start: 2014
  14. RYTARY [Suspect]
     Active Substance: CARBIDOPA\LEVODOPA
     Indication: PARKINSON^S DISEASE
     Dosage: 23.75/95 MG, ONE CAPSULE, EVERY 4HR
     Route: 048
     Dates: start: 20180628, end: 20180713
  15. OMEPRAZOLE. [Concomitant]
     Active Substance: OMEPRAZOLE
     Indication: ACID PEPTIC DISEASE
     Dosage: 40 MG, ONCE A DAY
     Route: 048
     Dates: start: 2015
  16. RYTARY [Suspect]
     Active Substance: CARBIDOPA\LEVODOPA
     Dosage: 48.75/195 MG, ONE CAPSULE, EVERY SIX HOURS
     Route: 048
     Dates: start: 20180714, end: 20180725
  17. SIMVASTATIN. [Concomitant]
     Active Substance: SIMVASTATIN
     Indication: BLOOD CHOLESTEROL ABNORMAL
     Dosage: 20 MG, ONCE A DAY
     Route: 048
     Dates: start: 2016
  18. SPIRONOLACTONE. [Concomitant]
     Active Substance: SPIRONOLACTONE
     Indication: DIZZINESS
     Dosage: 12.5 MG, ONCE A DAY
     Route: 048
     Dates: start: 2016
  19. ZYRTEC [Concomitant]
     Active Substance: CETIRIZINE HYDROCHLORIDE
     Indication: HYPERSENSITIVITY
     Dosage: 10 MG, ONCE A DAY
     Route: 048
     Dates: start: 2013
  20. MICORT [Concomitant]
     Indication: HAEMORRHOIDS
     Dosage: UNK, TWO TIMES A DAY
     Route: 054
     Dates: start: 20180809
  21. MEGESTROL ACETATE. [Concomitant]
     Active Substance: MEGESTROL ACETATE
     Indication: DECREASED APPETITE
     Dosage: 40 ML, ONCE A DAY
     Route: 048
     Dates: start: 201807, end: 201808

REACTIONS (5)
  - Confusional state [Not Recovered/Not Resolved]
  - Hypoacusis [Not Recovered/Not Resolved]
  - Mood swings [Not Recovered/Not Resolved]
  - Adverse event [Unknown]
  - Anger [Recovering/Resolving]

NARRATIVE: CASE EVENT DATE: 20180726
